FAERS Safety Report 6268819-2 (Version None)
Quarter: 2009Q3

REPORT INFORMATION
  Report Type: 
  Country: None (occurrence: None)
  Receive Date: 20090710
  Receipt Date: 20090710
  Transmission Date: 20100115
  Serious: Yes (Hospitalization)
  Sender: FDA-Public Use
  Company Number: None

PATIENT
  Age: 53 Year
  Sex: Male
  Weight: 63.8665 kg

DRUGS (2)
  1. LITHIUM CARBONATE [Suspect]
     Indication: IRRITABILITY
     Dosage: 300MG BID OTHER
     Route: 050
     Dates: start: 20090213, end: 20090708
  2. LITHIUM CARBONATE [Suspect]
     Indication: SCHIZOPHRENIA, PARANOID TYPE
     Dosage: 300MG BID OTHER
     Route: 050
     Dates: start: 20090213, end: 20090708

REACTIONS (3)
  - CONFUSIONAL STATE [None]
  - MENTAL STATUS CHANGES [None]
  - THERAPEUTIC AGENT TOXICITY [None]
